FAERS Safety Report 22100773 (Version 3)
Quarter: 2025Q4

REPORT INFORMATION
  Report Type: Spontaneous
  Country: GB (occurrence: GB)
  Receive Date: 20230316
  Receipt Date: 20251002
  Transmission Date: 20260117
  Serious: Yes (Hospitalization, Other)
  Sender: CELLTRION
  Company Number: GB-CELLTRION INC.-2022GB022308

PATIENT

DRUGS (340)
  1. TRASTUZUMAB [Suspect]
     Active Substance: TRASTUZUMAB
     Indication: Breast cancer
     Dosage: UNK (DOSE FORM: 120)
     Route: 058
     Dates: start: 20120817
  2. TRASTUZUMAB [Suspect]
     Active Substance: TRASTUZUMAB
     Dosage: UNK (DOSE FORM:230)
     Route: 042
     Dates: start: 20120817
  3. TRASTUZUMAB [Suspect]
     Active Substance: TRASTUZUMAB
     Dosage: UNK (DOSE FORM:230)
     Route: 042
     Dates: start: 20120817
  4. TRASTUZUMAB [Suspect]
     Active Substance: TRASTUZUMAB
     Dosage: 546 MG
     Route: 058
     Dates: start: 20120817
  5. TRASTUZUMAB [Suspect]
     Active Substance: TRASTUZUMAB
     Dosage: UNK (DOSE FORM:230)
     Route: 042
     Dates: start: 20120817
  6. TRASTUZUMAB [Suspect]
     Active Substance: TRASTUZUMAB
     Dosage: UNK (DOSE FORM:230)
     Route: 042
     Dates: start: 20120817
  7. TRASTUZUMAB [Suspect]
     Active Substance: TRASTUZUMAB
     Dosage: 420 MILLIGRAM (INITIATED 12-OCT-2012)
     Route: 042
     Dates: start: 20121012
  8. TRASTUZUMAB [Suspect]
     Active Substance: TRASTUZUMAB
     Dosage: 546 MILLIGRAM;
     Route: 042
     Dates: start: 20120817
  9. TRASTUZUMAB [Suspect]
     Active Substance: TRASTUZUMAB
     Dosage: 420 MG DOSE FORM: INJECTION
     Route: 042
     Dates: start: 20120817
  10. TRASTUZUMAB [Suspect]
     Active Substance: TRASTUZUMAB
     Dosage: 420 MG
     Route: 042
     Dates: start: 20120817
  11. TRASTUZUMAB [Suspect]
     Active Substance: TRASTUZUMAB
     Dosage: 546 MG DOSE FORM: INJECTION
     Route: 042
     Dates: start: 20120817
  12. TRASTUZUMAB [Suspect]
     Active Substance: TRASTUZUMAB
     Dosage: 546 MG
     Route: 042
     Dates: start: 20120817
  13. TRASTUZUMAB [Suspect]
     Active Substance: TRASTUZUMAB
     Dosage: 420 MG
     Route: 058
     Dates: start: 20121012
  14. TRASTUZUMAB [Suspect]
     Active Substance: TRASTUZUMAB
     Dosage: 420 MG
     Route: 042
     Dates: start: 20121012
  15. TRASTUZUMAB [Suspect]
     Active Substance: TRASTUZUMAB
     Dosage: UNK
     Route: 058
     Dates: start: 20120817
  16. TRASTUZUMAB [Suspect]
     Active Substance: TRASTUZUMAB
     Dosage: UNK
     Dates: start: 20120817
  17. TRASTUZUMAB [Suspect]
     Active Substance: TRASTUZUMAB
     Dosage: 420 MG DOSE FORM: INJECTION
     Route: 042
     Dates: start: 20121012
  18. TRASTUZUMAB [Suspect]
     Active Substance: TRASTUZUMAB
     Dosage: 420 MG
     Dates: start: 20120817
  19. TRASTUZUMAB [Suspect]
     Active Substance: TRASTUZUMAB
     Dosage: 546 MG
     Dates: start: 20120817
  20. TRASTUZUMAB [Suspect]
     Active Substance: TRASTUZUMAB
     Dosage: UNK DOSE FORM: INJECTION
     Route: 042
     Dates: start: 20121012
  21. TRASTUZUMAB [Suspect]
     Active Substance: TRASTUZUMAB
     Dosage: UNK DOSE FORM: INJECTION
     Route: 042
     Dates: start: 20120817
  22. TRASTUZUMAB [Suspect]
     Active Substance: TRASTUZUMAB
     Dosage: 230 (UNIT UNSPECIFIED) DOSE FORM: INJECTION
     Route: 042
     Dates: start: 20120817
  23. TRASTUZUMAB [Suspect]
     Active Substance: TRASTUZUMAB
     Dosage: UNK DOSE FORM: INJECTION
     Route: 058
     Dates: start: 20120817
  24. TRASTUZUMAB [Suspect]
     Active Substance: TRASTUZUMAB
     Dosage: 420 MILLIGRAM (INITIATED 12-OCT-2012);  (PHARMACEUTICAL DOSE FORM: SOLUTION FOR INFUSION)
     Route: 042
     Dates: start: 20121012
  25. TRASTUZUMAB [Suspect]
     Active Substance: TRASTUZUMAB
     Dosage: 546 MILLIGRAM;
     Dates: start: 20120817
  26. TRASTUZUMAB [Suspect]
     Active Substance: TRASTUZUMAB
     Dosage: INTRAVENOUS INFUSION, INTRAVENOUS DRIP;
     Route: 042
     Dates: start: 20120817
  27. TRASTUZUMAB [Suspect]
     Active Substance: TRASTUZUMAB
     Dosage: 230 (UNIT UNSPECIFIED); ;
     Dates: start: 20120817
  28. TRASTUZUMAB [Suspect]
     Active Substance: TRASTUZUMAB
     Dosage: UNK
     Dates: start: 20121012
  29. TRASTUZUMAB [Suspect]
     Active Substance: TRASTUZUMAB
     Dosage: UNK
     Route: 058
     Dates: start: 20120817
  30. TRASTUZUMAB [Suspect]
     Active Substance: TRASTUZUMAB
     Dosage: 546 MILLIGRAM (INTRAVENOUS INFUSION, INTRAVENOUS DRIP)
     Route: 042
     Dates: start: 20120817
  31. TRASTUZUMAB [Suspect]
     Active Substance: TRASTUZUMAB
     Dosage: 420 MILLIGRAM (INITIATED 12-OCT-2012);
     Route: 058
     Dates: start: 20120817
  32. TRASTUZUMAB [Suspect]
     Active Substance: TRASTUZUMAB
     Dosage: 546 MG
     Route: 041
     Dates: start: 20120817
  33. TRASTUZUMAB [Suspect]
     Active Substance: TRASTUZUMAB
     Dosage: 420 MILLIGRAM (INITIATED 12-OCT-2012);  (PHARMACEUTICAL DOSE FORM: SOLUTION FOR INFUSION)
     Dates: start: 20121012
  34. TRASTUZUMAB [Suspect]
     Active Substance: TRASTUZUMAB
     Dosage: INTRAVENOUS INFUSION, INTRAVENOUS DRIP;
     Dates: start: 20120817
  35. TRASTUZUMAB [Suspect]
     Active Substance: TRASTUZUMAB
     Dosage: 546 MILLIGRAM (INTRAVENOUS INFUSION, INTRAVENOUS DRIP)
     Route: 058
     Dates: start: 20120817
  36. TRASTUZUMAB [Suspect]
     Active Substance: TRASTUZUMAB
     Dosage: 420 MILLIGRAM
     Route: 058
     Dates: start: 20120817
  37. BEVACIZUMAB [Suspect]
     Active Substance: BEVACIZUMAB
     Indication: Non-small cell lung cancer metastatic
     Dosage: PDF-11201000
  38. BEVACIZUMAB [Suspect]
     Active Substance: BEVACIZUMAB
     Dosage: PDF-11201000
     Route: 042
  39. BEVACIZUMAB [Suspect]
     Active Substance: BEVACIZUMAB
     Dosage: UNK
     Route: 042
  40. BEVACIZUMAB [Suspect]
     Active Substance: BEVACIZUMAB
     Dosage: UNK
  41. BEVACIZUMAB [Suspect]
     Active Substance: BEVACIZUMAB
     Dosage: 1 DF
     Dates: start: 20200204
  42. TRASTUZUMAB [Suspect]
     Active Substance: TRASTUZUMAB
     Indication: Breast cancer
     Dosage: 420 MG
     Route: 058
     Dates: start: 20121012
  43. TRASTUZUMAB [Suspect]
     Active Substance: TRASTUZUMAB
     Dosage: 420 MG
     Route: 058
     Dates: start: 20121012
  44. TRASTUZUMAB [Suspect]
     Active Substance: TRASTUZUMAB
     Dosage: 546 MG
     Route: 058
     Dates: start: 20120817
  45. TRASTUZUMAB [Suspect]
     Active Substance: TRASTUZUMAB
     Dosage: 546 MG
     Route: 058
     Dates: start: 20120817
  46. TRASTUZUMAB [Suspect]
     Active Substance: TRASTUZUMAB
     Dosage: UNK
  47. TRASTUZUMAB [Suspect]
     Active Substance: TRASTUZUMAB
     Dosage: 420 MG
     Route: 042
     Dates: start: 20121012
  48. TRASTUZUMAB [Suspect]
     Active Substance: TRASTUZUMAB
     Dosage: 420 MILLIGRAM (INITIATED 12-OCT-2012);
     Route: 042
     Dates: start: 20121012
  49. METFORMIN [Suspect]
     Active Substance: METFORMIN HYDROCHLORIDE
     Indication: Product used for unknown indication
     Dosage: 2 G
     Route: 065
  50. METFORMIN [Suspect]
     Active Substance: METFORMIN HYDROCHLORIDE
     Dosage: 2 G, TABLET (UNCOATED, ORAL)
     Route: 048
  51. METFORMIN [Suspect]
     Active Substance: METFORMIN HYDROCHLORIDE
     Dosage: 2 G;
  52. METFORMIN [Suspect]
     Active Substance: METFORMIN HYDROCHLORIDE
     Dosage: 2 G, TABLET (UNCOATED, ORAL)
  53. METFORMIN [Suspect]
     Active Substance: METFORMIN HYDROCHLORIDE
     Dosage: 2 G
     Route: 048
  54. DOCETAXEL [Suspect]
     Active Substance: DOCETAXEL
     Indication: Breast cancer
     Dosage: 120 MILLIGRAM;
     Route: 065
     Dates: start: 20120817
  55. DOCETAXEL [Suspect]
     Active Substance: DOCETAXEL
     Indication: Breast cancer
     Dosage: UNK (INITIATED-10-DEC-2012 )
     Route: 065
     Dates: start: 20121210
  56. DOCETAXEL [Suspect]
     Active Substance: DOCETAXEL
     Dosage: 80 MILLIGRAM (INITIATED ON 12-OCT-2012) 80 MG, UNK
     Route: 065
     Dates: start: 20121012
  57. DOCETAXEL [Suspect]
     Active Substance: DOCETAXEL
     Dosage: UNK
     Route: 065
     Dates: start: 20120817
  58. DOCETAXEL [Suspect]
     Active Substance: DOCETAXEL
     Dosage: UNK
     Route: 065
     Dates: start: 20120817
  59. DOCETAXEL [Suspect]
     Active Substance: DOCETAXEL
     Dosage: UNK
     Route: 065
     Dates: start: 20120817
  60. DOCETAXEL [Suspect]
     Active Substance: DOCETAXEL
     Dosage: UNK
     Route: 065
     Dates: start: 20120817
  61. DOCETAXEL [Suspect]
     Active Substance: DOCETAXEL
     Dosage: UNK
     Route: 065
     Dates: start: 20121012
  62. DOCETAXEL [Suspect]
     Active Substance: DOCETAXEL
     Dosage: 80 MG, UNK;
     Route: 065
     Dates: start: 20121012
  63. DOCETAXEL [Suspect]
     Active Substance: DOCETAXEL
     Dosage: 80 MG
     Route: 065
     Dates: start: 20121012
  64. DOCETAXEL [Suspect]
     Active Substance: DOCETAXEL
     Dosage: UNK
     Route: 065
     Dates: start: 20120817
  65. DOCETAXEL [Suspect]
     Active Substance: DOCETAXEL
     Dosage: UNK
     Route: 065
     Dates: start: 20120817
  66. DOCETAXEL [Suspect]
     Active Substance: DOCETAXEL
     Dosage: UNK
     Route: 065
     Dates: start: 20120817
  67. DOCETAXEL [Suspect]
     Active Substance: DOCETAXEL
     Dosage: 80 MG
     Route: 065
     Dates: start: 20121012
  68. DOCETAXEL [Suspect]
     Active Substance: DOCETAXEL
     Dosage: UNK
     Route: 065
     Dates: start: 20121210
  69. DOCETAXEL [Suspect]
     Active Substance: DOCETAXEL
     Dosage: 120 MG;
     Route: 065
     Dates: start: 20121210
  70. DOCETAXEL [Suspect]
     Active Substance: DOCETAXEL
     Dosage: UNK
     Dates: start: 20121210
  71. DOCETAXEL [Suspect]
     Active Substance: DOCETAXEL
     Dosage: UNK
     Dates: start: 20121210
  72. DOCETAXEL [Suspect]
     Active Substance: DOCETAXEL
     Dosage: UNK
     Dates: start: 20121210
  73. DOCETAXEL [Suspect]
     Active Substance: DOCETAXEL
     Dosage: UNK
     Dates: start: 20121210
  74. DOCETAXEL [Suspect]
     Active Substance: DOCETAXEL
     Dosage: 120 MG
     Route: 065
     Dates: start: 20120817
  75. DOCETAXEL [Suspect]
     Active Substance: DOCETAXEL
     Dosage: 120MG/120 MILLIGRAM;
     Route: 065
     Dates: start: 20120817
  76. DOCETAXEL [Suspect]
     Active Substance: DOCETAXEL
     Dosage: 120 MG
     Dates: start: 20121210
  77. DOCETAXEL [Suspect]
     Active Substance: DOCETAXEL
     Dosage: 120 MILLIGRAM
     Dates: start: 20120817
  78. DOCETAXEL [Suspect]
     Active Substance: DOCETAXEL
     Dosage: 80 MILLIGRAM
     Dates: start: 20121012
  79. DOCETAXEL [Suspect]
     Active Substance: DOCETAXEL
     Dosage: 80 MILLIGRAM
     Dates: start: 20121012
  80. DOCETAXEL [Suspect]
     Active Substance: DOCETAXEL
     Dosage: 80 MILLIGRAM
     Dates: start: 20121012
  81. DOCETAXEL [Suspect]
     Active Substance: DOCETAXEL
     Dosage: 80 MILLIGRAM
     Dates: start: 20121012
  82. DOCETAXEL [Suspect]
     Active Substance: DOCETAXEL
     Dosage: UNK
     Dates: start: 20120817
  83. DOCETAXEL [Suspect]
     Active Substance: DOCETAXEL
     Dosage: UNK
     Dates: start: 20120817
  84. DOCETAXEL [Suspect]
     Active Substance: DOCETAXEL
     Dosage: UNK
     Dates: start: 20120817
  85. DOCETAXEL [Suspect]
     Active Substance: DOCETAXEL
     Dosage: UNK
     Dates: start: 20120817
  86. DOCETAXEL [Suspect]
     Active Substance: DOCETAXEL
     Dosage: UNK
     Dates: start: 20121012
  87. DOCETAXEL [Suspect]
     Active Substance: DOCETAXEL
     Dosage: UNK
     Dates: start: 20121012
  88. DOCETAXEL [Suspect]
     Active Substance: DOCETAXEL
     Dosage: UNK
     Dates: start: 20121012
  89. DOCETAXEL [Suspect]
     Active Substance: DOCETAXEL
     Dosage: UNK
     Dates: start: 20121012
  90. DOCETAXEL [Suspect]
     Active Substance: DOCETAXEL
     Dosage: 120 MG, STOP DATE 2012
     Dates: start: 20120817
  91. DOCETAXEL [Suspect]
     Active Substance: DOCETAXEL
     Dosage: 80 MG, UNK;
     Dates: start: 20121012
  92. DOCETAXEL [Suspect]
     Active Substance: DOCETAXEL
     Dosage: 120 MILLIGRAM;
     Dates: start: 20121210
  93. DOCETAXEL [Suspect]
     Active Substance: DOCETAXEL
     Dosage: 80 MILLIGRAM (INITIATED ON 12-OCT-2012) 80 MG, UNK
     Dates: start: 20121012
  94. DOCETAXEL [Suspect]
     Active Substance: DOCETAXEL
     Dosage: 120 MILLIGRAM
     Dates: start: 20120817
  95. DOCETAXEL [Suspect]
     Active Substance: DOCETAXEL
     Dosage: 120 MG
     Dates: start: 20121210
  96. DOCETAXEL [Suspect]
     Active Substance: DOCETAXEL
     Dosage: 120 MILLIGRAM;
     Dates: start: 20120817, end: 2012
  97. DOCETAXEL [Suspect]
     Active Substance: DOCETAXEL
     Indication: Breast cancer
     Dosage: UNK
     Dates: start: 20120817
  98. DOCETAXEL [Suspect]
     Active Substance: DOCETAXEL
     Dosage: UNK
     Dates: start: 20120817
  99. DOCETAXEL [Suspect]
     Active Substance: DOCETAXEL
     Dosage: UNK
     Dates: start: 20120817
  100. DOCETAXEL [Suspect]
     Active Substance: DOCETAXEL
     Dosage: UNK
     Dates: start: 20120817
  101. DOCETAXEL [Suspect]
     Active Substance: DOCETAXEL
     Dosage: 80 MG
     Dates: start: 20121012
  102. DOCETAXEL [Suspect]
     Active Substance: DOCETAXEL
     Dosage: 80 MG
     Dates: start: 20121012
  103. DOCETAXEL [Suspect]
     Active Substance: DOCETAXEL
     Dosage: 80 MG
     Dates: start: 20121012
  104. DOCETAXEL [Suspect]
     Active Substance: DOCETAXEL
     Dosage: 80 MILLIGRAM (INITIATED ON 12-OCT-2012) 80 MG, UNK;
     Dates: start: 20121012
  105. DOCETAXEL [Suspect]
     Active Substance: DOCETAXEL
     Dosage: 120 MG
     Dates: start: 20121210
  106. DOCETAXEL [Suspect]
     Active Substance: DOCETAXEL
     Dosage: 120 MG
     Dates: start: 20121210
  107. DOCETAXEL [Suspect]
     Active Substance: DOCETAXEL
     Dosage: 120 MG
     Dates: start: 20121210
  108. DOCETAXEL [Suspect]
     Active Substance: DOCETAXEL
     Dosage: 120 MG
     Dates: start: 20121210
  109. DOCETAXEL [Suspect]
     Active Substance: DOCETAXEL
     Dosage: 120 MG
     Dates: start: 20120817
  110. DOCETAXEL [Suspect]
     Active Substance: DOCETAXEL
     Dosage: 120 MG
     Dates: start: 20120817
  111. DOCETAXEL [Suspect]
     Active Substance: DOCETAXEL
     Dosage: 120 MG
     Dates: start: 20120817
  112. DOCETAXEL [Suspect]
     Active Substance: DOCETAXEL
     Dosage: 120 MG
     Dates: start: 20120817
  113. DOCETAXEL [Suspect]
     Active Substance: DOCETAXEL
     Dosage: UNK
  114. DOCETAXEL [Suspect]
     Active Substance: DOCETAXEL
     Dosage: 120 MG
     Dates: start: 20121210
  115. DOCETAXEL [Suspect]
     Active Substance: DOCETAXEL
     Dosage: 120 MILLIGRAM;
     Dates: start: 20120817
  116. DOCETAXEL [Suspect]
     Active Substance: DOCETAXEL
     Indication: Breast cancer
     Dosage: 120 MILLIGRAM
     Route: 065
  117. DOCETAXEL [Suspect]
     Active Substance: DOCETAXEL
     Dosage: 120 MILLIGRAM;
     Dates: start: 20120817, end: 2012
  118. DOCETAXEL [Suspect]
     Active Substance: DOCETAXEL
     Dosage: 120 MG;
     Dates: start: 20121012
  119. CARBOPLATIN [Suspect]
     Active Substance: CARBOPLATIN
     Indication: Breast cancer
     Dosage: 500 MILLIGRAM (INITIATED 12-OCT-2012)
     Dates: start: 20121012
  120. CARBOPLATIN [Suspect]
     Active Substance: CARBOPLATIN
     Dosage: 750 MILLIGRAM;
     Route: 065
     Dates: start: 20120817
  121. CARBOPLATIN [Suspect]
     Active Substance: CARBOPLATIN
     Dosage: UNK
     Route: 065
     Dates: start: 20120817
  122. CARBOPLATIN [Suspect]
     Active Substance: CARBOPLATIN
     Dosage: UNK
     Route: 065
     Dates: start: 20120817
  123. CARBOPLATIN [Suspect]
     Active Substance: CARBOPLATIN
     Dosage: UNK
     Route: 065
     Dates: start: 20120817
  124. CARBOPLATIN [Suspect]
     Active Substance: CARBOPLATIN
     Dosage: UNK
     Route: 065
     Dates: start: 20120817
  125. CARBOPLATIN [Suspect]
     Active Substance: CARBOPLATIN
     Dosage: UNK
     Route: 065
     Dates: start: 20120817
  126. CARBOPLATIN [Suspect]
     Active Substance: CARBOPLATIN
     Dosage: UNK
     Route: 065
     Dates: start: 20120817
  127. CARBOPLATIN [Suspect]
     Active Substance: CARBOPLATIN
     Dosage: 500 MG
     Route: 065
     Dates: start: 20121012
  128. CARBOPLATIN [Suspect]
     Active Substance: CARBOPLATIN
     Dosage: 500 MG
     Dates: start: 20121012
  129. CARBOPLATIN [Suspect]
     Active Substance: CARBOPLATIN
     Dosage: UNK
     Dates: start: 20120817
  130. CARBOPLATIN [Suspect]
     Active Substance: CARBOPLATIN
     Dosage: 750 MG
     Dates: start: 20120817
  131. CARBOPLATIN [Suspect]
     Active Substance: CARBOPLATIN
     Dosage: 500 MG
     Dates: start: 20121012
  132. CARBOPLATIN [Suspect]
     Active Substance: CARBOPLATIN
     Dosage: 750 MG
     Dates: start: 20120817
  133. CARBOPLATIN [Suspect]
     Active Substance: CARBOPLATIN
     Dosage: 750 MG
     Dates: start: 20120817
  134. CARBOPLATIN [Suspect]
     Active Substance: CARBOPLATIN
     Dosage: UNK
     Dates: start: 20120817
  135. CARBOPLATIN [Suspect]
     Active Substance: CARBOPLATIN
     Dosage: UNK
     Dates: start: 20120817
  136. CARBOPLATIN [Suspect]
     Active Substance: CARBOPLATIN
     Dosage: 750 MILLIGRAM;
     Dates: start: 20120817
  137. CARBOPLATIN [Suspect]
     Active Substance: CARBOPLATIN
     Indication: Breast cancer
     Dosage: 500 MILLIGRAM (INITIATED 12-OCT-2012);/500 MG
     Dates: start: 20121012
  138. CARBOPLATIN [Suspect]
     Active Substance: CARBOPLATIN
     Dosage: 750 MILLIGRAM
     Dates: start: 20120817
  139. CARBOPLATIN [Suspect]
     Active Substance: CARBOPLATIN
     Dosage: UNK
     Dates: start: 20120817
  140. PERTUZUMAB [Suspect]
     Active Substance: PERTUZUMAB
     Indication: Breast cancer
     Dosage: DATE OF LAST DOSE PRIOR TO SAE: 12/OCT/2012 (DOSE FORM: 293); EVERY 3 WEEKS
     Route: 042
     Dates: start: 20120817, end: 20121012
  141. PERTUZUMAB [Suspect]
     Active Substance: PERTUZUMAB
     Indication: Breast cancer
     Dosage: DATE OF LAST DOSE PRIOR TO SAE: 12/OCT/2012 (DOSE FORM: 293); EVERY 3 WEEKS
     Route: 042
     Dates: start: 20120817, end: 20121012
  142. PERTUZUMAB [Suspect]
     Active Substance: PERTUZUMAB
     Dosage: DATE OF LAST DOSE PRIOR TO SAE: 12/OCT/2012 (DOSE FORM: 293); EVERY 3 WEEKS
     Route: 042
     Dates: start: 20120817, end: 20121012
  143. PERTUZUMAB [Suspect]
     Active Substance: PERTUZUMAB
     Dosage: DATE OF LAST DOSE PRIOR TO SAE: 12/OCT/2012 (DOSE FORM: 293); EVERY 3 WEEKS
     Route: 042
     Dates: start: 20120817, end: 20121012
  144. PERTUZUMAB [Suspect]
     Active Substance: PERTUZUMAB
     Dosage: 1 MG 3 WEEK DATE OF LAST DOSE PRIOR TO SAE: 12/OCT/2012/CUMULATIVE DOSE TO FIRST REACTION: 0.0952380
     Route: 042
     Dates: start: 20120817
  145. PERTUZUMAB [Suspect]
     Active Substance: PERTUZUMAB
     Dosage: DATE OF LAST DOSE PRIOR TO SAE: 12/OCT/2012 (DOSE FORM: 293)
     Route: 042
     Dates: start: 20120817
  146. PERTUZUMAB [Suspect]
     Active Substance: PERTUZUMAB
     Dosage: DATE OF LAST DOSE PRIOR TO SAE: 12/OCT/2012 (DOSE FORM: 293)
     Route: 042
     Dates: start: 20120817
  147. PERTUZUMAB [Suspect]
     Active Substance: PERTUZUMAB
     Dosage: DATE OF LAST DOSE PRIOR TO SAE: 12/OCT/2012 (DOSE FORM: 293)
     Route: 042
     Dates: start: 20120817
  148. PERTUZUMAB [Suspect]
     Active Substance: PERTUZUMAB
     Dosage: 1 MG EVERY 3 WEEKS/DATE OF LAST DOSE PRIOR TO SAE: 12/OCT/2012 (DOSE FORM: 293) 1 MG, Q3W DATE OF LA
     Route: 042
     Dates: start: 20120817, end: 20121012
  149. PERTUZUMAB [Suspect]
     Active Substance: PERTUZUMAB
     Dosage: 1 MG EVERY 3 WEEKS/DATE OF LAST DOSE PRIOR TO SAE: 12/OCT/2012 (DOSE FORM: 293) 1 MG, Q3W DATE OF LA
     Route: 042
     Dates: start: 20120817, end: 20121012
  150. PERTUZUMAB [Suspect]
     Active Substance: PERTUZUMAB
     Dosage: 1 MG EVERY 3 WEEKS/DATE OF LAST DOSE PRIOR TO SAE: 12/OCT/2012 (DOSE FORM: 293) 1 MG, Q3W DATE OF LA
     Route: 042
     Dates: start: 20120817, end: 20121012
  151. PERTUZUMAB [Suspect]
     Active Substance: PERTUZUMAB
     Dosage: 1 MG EVERY 3 WEEKS/DATE OF LAST DOSE PRIOR TO SAE: 12/OCT/2012 (DOSE FORM: 293) 1 MG, Q3W DATE OF LA
     Route: 042
     Dates: start: 20120817, end: 20121012
  152. PERTUZUMAB [Suspect]
     Active Substance: PERTUZUMAB
     Dosage: UNK, CUMULATIVE DOSE: 0.158 MG
     Route: 065
     Dates: start: 20121012
  153. PERTUZUMAB [Suspect]
     Active Substance: PERTUZUMAB
     Dosage: UNK, CUMULATIVE DOSE: 0.158 MG
     Route: 065
     Dates: start: 20121012
  154. PERTUZUMAB [Suspect]
     Active Substance: PERTUZUMAB
     Dosage: UNK, CUMULATIVE DOSE: 0.158 MG
     Route: 065
     Dates: start: 20121012
  155. PERTUZUMAB [Suspect]
     Active Substance: PERTUZUMAB
     Dosage: UNK, CUMULATIVE DOSE: 0.158 MG
     Route: 065
     Dates: start: 20121012
  156. PERTUZUMAB [Suspect]
     Active Substance: PERTUZUMAB
     Dosage: DATE OF LAST DOSE PRIOR TO SAE: 12/OCT/2012/CUMULATIVE DOSE TO FIRST REACTION: 0.09523809 MG
     Route: 042
     Dates: start: 20120817
  157. PERTUZUMAB [Suspect]
     Active Substance: PERTUZUMAB
     Dosage: DATE OF LAST DOSE PRIOR TO SAE: 12/OCT/2012 (CUMULATIVE DOSE: 0.09523809 MG)
     Route: 042
     Dates: start: 20120817, end: 20121012
  158. PERTUZUMAB [Suspect]
     Active Substance: PERTUZUMAB
     Dosage: UNK
     Route: 042
     Dates: start: 20121012
  159. PERTUZUMAB [Suspect]
     Active Substance: PERTUZUMAB
     Dosage: UNK
     Route: 042
     Dates: start: 20121012
  160. PERTUZUMAB [Suspect]
     Active Substance: PERTUZUMAB
     Dosage: UNK
     Route: 042
     Dates: start: 20121012
  161. PERTUZUMAB [Suspect]
     Active Substance: PERTUZUMAB
     Dosage: UNK
     Route: 042
     Dates: start: 20121012
  162. PERTUZUMAB [Suspect]
     Active Substance: PERTUZUMAB
     Dosage: UNK
     Dates: start: 20121012
  163. PERTUZUMAB [Suspect]
     Active Substance: PERTUZUMAB
     Dosage: UNK
     Route: 042
     Dates: start: 20121012
  164. PERTUZUMAB [Suspect]
     Active Substance: PERTUZUMAB
     Dosage: 1 MG, Q3W (DATE OF LAST DOSE PRIOR TO SAE: 12/OCT/2012) CUMULATIVE DOSE: 0.158 MG
     Route: 042
     Dates: start: 20120817, end: 20121012
  165. PERTUZUMAB [Suspect]
     Active Substance: PERTUZUMAB
     Dosage: 1 MG, Q3W (DATE OF LAST DOSE PRIOR TO SAE: 12/OCT/2012) CUMULATIVE DOSE: 0.158 MG
     Route: 042
     Dates: start: 20120817, end: 20121012
  166. PERTUZUMAB [Suspect]
     Active Substance: PERTUZUMAB
     Dosage: 1 MG, Q3W (DATE OF LAST DOSE PRIOR TO SAE: 12/OCT/2012) CUMULATIVE DOSE: 0.158 MG
     Route: 042
     Dates: start: 20120817, end: 20121012
  167. PERTUZUMAB [Suspect]
     Active Substance: PERTUZUMAB
     Dosage: 1 MG, Q3W (DATE OF LAST DOSE PRIOR TO SAE: 12/OCT/2012) CUMULATIVE DOSE: 0.158 MG
     Route: 042
     Dates: start: 20120817, end: 20121012
  168. PERTUZUMAB [Suspect]
     Active Substance: PERTUZUMAB
     Dosage: UNK
     Route: 042
  169. PERTUZUMAB [Suspect]
     Active Substance: PERTUZUMAB
     Indication: Breast cancer
     Dosage: 1 MG, Q3W DATE OF LAST DOSE PRIOR TO SAE: 12 OCT 2012
     Dates: start: 20120817, end: 20121012
  170. PERTUZUMAB [Suspect]
     Active Substance: PERTUZUMAB
     Dosage: 1 MG, Q3W DATE OF LAST DOSE PRIOR TO SAE: 12 OCT 2012
     Dates: start: 20120817, end: 20121012
  171. PERTUZUMAB [Suspect]
     Active Substance: PERTUZUMAB
     Dosage: 1 MG, Q3W DATE OF LAST DOSE PRIOR TO SAE: 12 OCT 2012
     Dates: start: 20120817, end: 20121012
  172. PERTUZUMAB [Suspect]
     Active Substance: PERTUZUMAB
     Dosage: 1 MG, Q3W DATE OF LAST DOSE PRIOR TO SAE: 12 OCT 2012
     Dates: start: 20120817, end: 20121012
  173. PERTUZUMAB [Suspect]
     Active Substance: PERTUZUMAB
     Indication: Breast cancer
     Dosage: UNK (CUMULATIVE DOSE TO FIRST REACTION: 0.158)
     Route: 042
     Dates: start: 20121012
  174. PERTUZUMAB [Suspect]
     Active Substance: PERTUZUMAB
     Indication: Breast cancer
     Dosage: UNK (CUMULATIVE DOSE TO FIRST REACTION: 0.158)
     Route: 042
     Dates: start: 20121012
  175. PERTUZUMAB [Suspect]
     Active Substance: PERTUZUMAB
     Dosage: UNK (CUMULATIVE DOSE TO FIRST REACTION: 0.158)
     Route: 042
     Dates: start: 20121012
  176. PERTUZUMAB [Suspect]
     Active Substance: PERTUZUMAB
     Dosage: UNK (CUMULATIVE DOSE TO FIRST REACTION: 0.158)
     Route: 042
     Dates: start: 20121012
  177. PERTUZUMAB [Suspect]
     Active Substance: PERTUZUMAB
     Dosage: 1 MG, Q3W DATE OF LAST DOSE PRIOR TO SAE: 12 OCT 2012
     Route: 042
     Dates: start: 20120817, end: 20121012
  178. PERTUZUMAB [Suspect]
     Active Substance: PERTUZUMAB
     Dosage: 1 MG, Q3W DATE OF LAST DOSE PRIOR TO SAE: 12 OCT 2012
     Route: 042
     Dates: start: 20120817, end: 20121012
  179. PERTUZUMAB [Suspect]
     Active Substance: PERTUZUMAB
     Dosage: 1 MG, Q3W DATE OF LAST DOSE PRIOR TO SAE: 12 OCT 2012
     Route: 042
     Dates: start: 20120817, end: 20121012
  180. PERTUZUMAB [Suspect]
     Active Substance: PERTUZUMAB
     Dosage: 1 MG, Q3W DATE OF LAST DOSE PRIOR TO SAE: 12 OCT 2012
     Route: 042
     Dates: start: 20120817, end: 20121012
  181. PERTUZUMAB [Suspect]
     Active Substance: PERTUZUMAB
     Dosage: UNK (DOSAGE TEXT: INFUSION)
     Dates: start: 20121012
  182. PERTUZUMAB [Suspect]
     Active Substance: PERTUZUMAB
     Dosage: UNK (DOSAGE TEXT: INFUSION)
     Dates: start: 20121012
  183. PERTUZUMAB [Suspect]
     Active Substance: PERTUZUMAB
     Dosage: UNK (DOSAGE TEXT: INFUSION)
     Dates: start: 20121012
  184. PERTUZUMAB [Suspect]
     Active Substance: PERTUZUMAB
     Dosage: UNK (DOSAGE TEXT: INFUSION)
     Dates: start: 20121012
  185. PERTUZUMAB [Suspect]
     Active Substance: PERTUZUMAB
     Dosage: UNK
     Route: 042
     Dates: start: 20121012
  186. PERTUZUMAB [Suspect]
     Active Substance: PERTUZUMAB
     Dosage: UNK
     Dates: start: 20121012
  187. PERTUZUMAB [Suspect]
     Active Substance: PERTUZUMAB
     Dosage: UNK
     Dates: start: 20121012
  188. PERTUZUMAB [Suspect]
     Active Substance: PERTUZUMAB
     Dosage: UNK
     Dates: start: 20121012
  189. PERTUZUMAB [Suspect]
     Active Substance: PERTUZUMAB
     Dosage: UNK
     Dates: start: 20121012
  190. PERTUZUMAB [Suspect]
     Active Substance: PERTUZUMAB
     Dosage: UNK
     Dates: start: 20121012
  191. PERTUZUMAB [Suspect]
     Active Substance: PERTUZUMAB
     Dosage: 0.16 MG (0.158 MILLIGRAM)
     Route: 042
     Dates: start: 20121012
  192. PERTUZUMAB [Suspect]
     Active Substance: PERTUZUMAB
     Dosage: UNK
     Route: 042
  193. METFORMIN HYDROCHLORIDE [Suspect]
     Active Substance: METFORMIN HYDROCHLORIDE
     Indication: Product used for unknown indication
     Dosage: 2 G
  194. METFORMIN HYDROCHLORIDE [Suspect]
     Active Substance: METFORMIN HYDROCHLORIDE
     Dosage: 2 GRAM
     Route: 048
  195. METFORMIN HYDROCHLORIDE [Suspect]
     Active Substance: METFORMIN HYDROCHLORIDE
     Dosage: 2 G;
  196. HERCEPTIN [Suspect]
     Active Substance: TRASTUZUMAB
     Indication: Breast cancer
     Dosage: 546 MILLIGRAM (DOSE FORM: 230)
     Route: 042
     Dates: start: 20120817
  197. HERCEPTIN [Suspect]
     Active Substance: TRASTUZUMAB
     Dosage: 420 MILLIGRAM (INITIATED 12-OCT-2012)
     Route: 042
     Dates: start: 20121012
  198. HERCEPTIN [Suspect]
     Active Substance: TRASTUZUMAB
     Dosage: 420 MILLIGRAM
     Dates: start: 20121012
  199. HERCEPTIN [Suspect]
     Active Substance: TRASTUZUMAB
     Dosage: 546 MILLIGRAM
     Route: 042
     Dates: start: 20120817
  200. HERCEPTIN [Suspect]
     Active Substance: TRASTUZUMAB
     Dosage: 420 MG
     Route: 042
     Dates: start: 20121012
  201. ATEZOLIZUMAB [Suspect]
     Active Substance: ATEZOLIZUMAB
     Indication: Neoplasm malignant
     Dosage: 1200 MILLIGRAM, 3 WEEK
     Route: 042
     Dates: start: 20200202
  202. ATEZOLIZUMAB [Suspect]
     Active Substance: ATEZOLIZUMAB
     Indication: Non-small cell lung cancer metastatic
     Dosage: 1200 MG, Q3WK
     Route: 042
     Dates: start: 20200304
  203. ATEZOLIZUMAB [Suspect]
     Active Substance: ATEZOLIZUMAB
     Dosage: 1200 MG, Q3WK
     Route: 042
     Dates: start: 20200812
  204. ATEZOLIZUMAB [Suspect]
     Active Substance: ATEZOLIZUMAB
     Dosage: 1200 MILLIGRAM, Q3WK
     Route: 042
     Dates: start: 20200826
  205. ATEZOLIZUMAB [Suspect]
     Active Substance: ATEZOLIZUMAB
     Dosage: 1200 MILLIGRAM, TIW
     Route: 042
     Dates: start: 20200204
  206. ATEZOLIZUMAB [Suspect]
     Active Substance: ATEZOLIZUMAB
     Dosage: 1200 MILLIGRAM, Q3WK
     Route: 042
     Dates: start: 20200626
  207. ATEZOLIZUMAB [Suspect]
     Active Substance: ATEZOLIZUMAB
     Dosage: 1200 MILLIGRAM, Q3WK
     Route: 042
     Dates: start: 20200212, end: 20200415
  208. ATEZOLIZUMAB [Suspect]
     Active Substance: ATEZOLIZUMAB
     Dosage: 1200 MG, Q3WK
     Route: 042
     Dates: start: 20200415
  209. ATEZOLIZUMAB [Suspect]
     Active Substance: ATEZOLIZUMAB
     Dosage: 1200 MILLIGRAM, Q3WK
     Route: 042
     Dates: start: 20200603
  210. ATEZOLIZUMAB [Suspect]
     Active Substance: ATEZOLIZUMAB
     Dosage: 1200 MILLIGRAM, Q3WK
     Route: 042
     Dates: start: 20200312
  211. ATEZOLIZUMAB [Suspect]
     Active Substance: ATEZOLIZUMAB
     Dosage: 1200 MILLIGRAM, Q3WK
     Route: 042
     Dates: start: 20200916
  212. ATEZOLIZUMAB [Suspect]
     Active Substance: ATEZOLIZUMAB
     Dosage: 1200 MILLIGRAM, Q3WK
     Route: 042
     Dates: start: 20200513, end: 20200715
  213. ATEZOLIZUMAB [Suspect]
     Active Substance: ATEZOLIZUMAB
     Dosage: 1200 MILLIGRAM, Q3WK
     Route: 042
     Dates: start: 20200715
  214. ATEZOLIZUMAB [Suspect]
     Active Substance: ATEZOLIZUMAB
     Dosage: 1200 MILLIGRAM, Q3WK
     Route: 042
     Dates: start: 20200312
  215. ATEZOLIZUMAB [Suspect]
     Active Substance: ATEZOLIZUMAB
     Dosage: 1200 MILLIGRAM Q3WEEK
     Route: 042
     Dates: start: 20200624
  216. ATEZOLIZUMAB [Suspect]
     Active Substance: ATEZOLIZUMAB
     Dosage: 1200 MILLIGRAM Q3WEEK
     Route: 042
     Dates: start: 20200325
  217. ATEZOLIZUMAB [Suspect]
     Active Substance: ATEZOLIZUMAB
     Dosage: 1200 MILLIGRAM Q3WEEK
     Route: 042
     Dates: start: 20200805
  218. ATEZOLIZUMAB [Suspect]
     Active Substance: ATEZOLIZUMAB
     Dosage: 1200 MILLIGRAM Q3WEEK
     Route: 042
     Dates: start: 20200306
  219. CARBOPLATIN [Suspect]
     Active Substance: CARBOPLATIN
     Indication: Non-small cell lung cancer metastatic
     Dosage: UNK
  220. CARBOPLATIN [Suspect]
     Active Substance: CARBOPLATIN
     Dosage: UNK
  221. ETOPOSIDE [Suspect]
     Active Substance: ETOPOSIDE
     Indication: Non-small cell lung cancer metastatic
  222. ETOPOSIDE [Suspect]
     Active Substance: ETOPOSIDE
     Indication: Neoplasm malignant
     Dosage: UNK
  223. ETOPOSIDE [Suspect]
     Active Substance: ETOPOSIDE
     Dosage: UNK
  224. FILGRASTIM [Suspect]
     Active Substance: FILGRASTIM
     Indication: Non-small cell lung cancer metastatic
     Dosage: MOST RECENT DOSE : 15/MAY/2020
     Dates: start: 20200513, end: 20200515
  225. FILGRASTIM [Suspect]
     Active Substance: FILGRASTIM
     Indication: White blood cell count decreased
     Dosage: UNK
     Dates: start: 20200512, end: 20200515
  226. FILGRASTIM [Suspect]
     Active Substance: FILGRASTIM
     Dosage: UNK
     Dates: start: 20200513, end: 20220515
  227. FILGRASTIM [Suspect]
     Active Substance: FILGRASTIM
     Dosage: UNK (CUMULATIVE DOSE TO FIRST REACTION: 2 MG/ADDITIONAL INFORMATION ON DRUG (FREE TEXT): DOSAGE1: UN
     Dates: start: 20120818, end: 20120823
  228. FILGRASTIM [Suspect]
     Active Substance: FILGRASTIM
     Dosage: UNK (CUMULATIVE DOSE TO FIRST REACTION: 2 MG/ADDITIONAL INFORMATION ON DRUG (FREE TEXT): DOSAGE1: UN
     Dates: start: 20120914, end: 20120920
  229. FILGRASTIM [Suspect]
     Active Substance: FILGRASTIM
     Dosage: UNK (CUMULATIVE DOSE TO FIRST REACTION: 2 MG/ADDITIONAL INFORMATION ON DRUG (FREE TEXT): DOSAGE1: UN
     Dates: start: 20121012, end: 20121019
  230. GLICLAZIDE [Suspect]
     Active Substance: GLICLAZIDE
     Indication: Product used for unknown indication
     Dosage: DOSAGE1: UNIT=NOT AVAILABLE DOSAGE2: UNIT=NOT AVAILABLE DOSAGE3: UNIT=NOT AVAILABLE DOSAGE4: UNIT=NO
  231. FAMOTIDINE [Suspect]
     Active Substance: FAMOTIDINE
     Indication: Product used for unknown indication
     Dosage: 40 MILLIGRAM, QD
     Dates: start: 20200212, end: 20200212
  232. FAMOTIDINE [Suspect]
     Active Substance: FAMOTIDINE
     Dosage: 40 MILLIGRAM, QD
     Dates: start: 20200212, end: 20200212
  233. FAMOTIDINE [Suspect]
     Active Substance: FAMOTIDINE
     Dosage: UNK
     Dates: start: 20200513, end: 20200513
  234. PACLITAXEL [Suspect]
     Active Substance: PACLITAXEL
     Indication: Non-small cell lung cancer metastatic
     Dosage: UNK
  235. PACLITAXEL [Suspect]
     Active Substance: PACLITAXEL
     Dosage: 10 MILLIGRAM
     Dates: start: 20200325, end: 20200325
  236. PROLIA [Suspect]
     Active Substance: DENOSUMAB
     Indication: Non-small cell lung cancer metastatic
     Dosage: UNK
  237. PROLIA [Suspect]
     Active Substance: DENOSUMAB
     Indication: Bone pain
     Dosage: UNK
     Dates: start: 20200803
  238. FILGRASTIM [Concomitant]
     Active Substance: FILGRASTIM
     Indication: Product used for unknown indication
     Dosage: UNK
     Route: 065
     Dates: start: 20120914, end: 20120920
  239. FILGRASTIM [Concomitant]
     Active Substance: FILGRASTIM
     Dosage: UNK
     Dates: start: 20121012, end: 20121019
  240. FILGRASTIM [Concomitant]
     Active Substance: FILGRASTIM
     Dosage: UNK
     Dates: start: 20120818, end: 20120823
  241. FILGRASTIM [Concomitant]
     Active Substance: FILGRASTIM
     Dosage: UNK
     Dates: start: 20120914, end: 20120920
  242. FILGRASTIM [Concomitant]
     Active Substance: FILGRASTIM
     Dosage: UNK
     Dates: start: 20120818, end: 20120823
  243. FILGRASTIM [Concomitant]
     Active Substance: FILGRASTIM
     Dosage: UNK
     Dates: start: 20121012, end: 20121019
  244. FILGRASTIM [Concomitant]
     Active Substance: FILGRASTIM
     Dosage: UNK
     Dates: start: 20120818, end: 20120823
  245. FILGRASTIM [Concomitant]
     Active Substance: FILGRASTIM
     Dosage: UNK
     Dates: start: 20121012, end: 20121019
  246. FILGRASTIM [Concomitant]
     Active Substance: FILGRASTIM
     Dosage: UNK
     Dates: start: 20120914, end: 20120920
  247. FILGRASTIM [Concomitant]
     Active Substance: FILGRASTIM
     Dosage: UNK
     Dates: start: 20120914, end: 20120920
  248. FILGRASTIM [Concomitant]
     Active Substance: FILGRASTIM
     Dosage: UNK
     Dates: start: 20120914, end: 20120920
  249. FILGRASTIM [Concomitant]
     Active Substance: FILGRASTIM
     Dosage: UNK
     Dates: start: 20121012, end: 20121019
  250. GLICLAZIDE [Concomitant]
     Active Substance: GLICLAZIDE
     Indication: Product used for unknown indication
     Dosage: UNK
  251. CALCIUM\CHOLECALCIFEROL [Concomitant]
     Active Substance: CALCIUM\CHOLECALCIFEROL
     Indication: Product used for unknown indication
     Dosage: UNK
     Dates: start: 20120817
  252. CALCIUM\CHOLECALCIFEROL [Concomitant]
     Active Substance: CALCIUM\CHOLECALCIFEROL
     Dosage: UNK
  253. ONDANSETRON [Concomitant]
     Active Substance: ONDANSETRON
     Indication: Product used for unknown indication
     Dosage: UNK (BOLUS)
     Route: 048
     Dates: start: 20120817, end: 20120821
  254. ONDANSETRON [Concomitant]
     Active Substance: ONDANSETRON
     Dosage: 6 MILLIGRAM (4-6 MG); 4-6MG
     Route: 048
     Dates: start: 20121012, end: 20121018
  255. ONDANSETRON [Concomitant]
     Active Substance: ONDANSETRON
     Dosage: UNK
     Route: 042
     Dates: start: 20120817
  256. ONDANSETRON [Concomitant]
     Active Substance: ONDANSETRON
     Dosage: UNK
     Route: 048
     Dates: start: 20120914, end: 20120918
  257. ONDANSETRON [Concomitant]
     Active Substance: ONDANSETRON
     Dosage: 4-6 MG
     Route: 065
     Dates: start: 20121012, end: 20121018
  258. ONDANSETRON [Concomitant]
     Active Substance: ONDANSETRON
     Dosage: BOLUS
     Route: 065
     Dates: start: 20120817
  259. ONDANSETRON [Concomitant]
     Active Substance: ONDANSETRON
     Dosage: UNK (BOLUS)
     Route: 048
     Dates: start: 20120817, end: 20120821
  260. ONDANSETRON [Concomitant]
     Active Substance: ONDANSETRON
     Dosage: UNK
     Route: 048
     Dates: start: 20120914, end: 20120918
  261. ONDANSETRON [Concomitant]
     Active Substance: ONDANSETRON
     Dosage: UNK
     Route: 040
     Dates: start: 20120817
  262. ONDANSETRON [Concomitant]
     Active Substance: ONDANSETRON
     Dosage: UNK
     Dates: start: 20120914, end: 20120919
  263. ONDANSETRON [Concomitant]
     Active Substance: ONDANSETRON
     Dosage: UNK (BOLUS)
     Dates: start: 20120817, end: 20120821
  264. ONDANSETRON [Concomitant]
     Active Substance: ONDANSETRON
     Dosage: 6 MILLIGRAM (4-6 MG); 4-6 MG;
     Route: 048
     Dates: start: 20121012, end: 20121018
  265. ONDANSETRON [Concomitant]
     Active Substance: ONDANSETRON
     Dosage: UNK
     Route: 048
     Dates: start: 20120817, end: 20120821
  266. ONDANSETRON [Concomitant]
     Active Substance: ONDANSETRON
     Dosage: UNK
     Route: 048
     Dates: start: 20120817
  267. ONDANSETRON [Concomitant]
     Active Substance: ONDANSETRON
     Dosage: UNK
     Dates: start: 20120817
  268. ONDANSETRON [Concomitant]
     Active Substance: ONDANSETRON
     Dosage: UNK
     Dates: start: 20120817, end: 20120821
  269. ONDANSETRON [Concomitant]
     Active Substance: ONDANSETRON
     Dosage: 4-6 MG
     Dates: start: 20121012, end: 20121018
  270. ONDANSETRON [Concomitant]
     Active Substance: ONDANSETRON
     Dosage: 6 MILLIGRAM (4-6 MG)
     Dates: start: 20121012, end: 20121018
  271. ONDANSETRON [Concomitant]
     Active Substance: ONDANSETRON
     Dosage: 6 MILLIGRAM 4-6 MG;
     Route: 048
     Dates: start: 20121012, end: 20121018
  272. ONDANSETRON [Concomitant]
     Active Substance: ONDANSETRON
     Dosage: UNK
     Route: 048
     Dates: start: 20120914, end: 20120918
  273. ONDANSETRON [Concomitant]
     Active Substance: ONDANSETRON
     Dosage: UNK (BOLUS); ;
     Dates: start: 20120817, end: 20120821
  274. ONDANSETRON [Concomitant]
     Active Substance: ONDANSETRON
     Dosage: 6 MILLIGRAM (4-6 MG); 4-6 MG;
     Dates: start: 20121012, end: 20121018
  275. ONDANSETRON [Concomitant]
     Active Substance: ONDANSETRON
     Dosage: UNK
     Dates: start: 20120914, end: 20120918
  276. ONDANSETRON [Concomitant]
     Active Substance: ONDANSETRON
     Dosage: 4-6 MG;
     Route: 048
     Dates: start: 20121012, end: 20121018
  277. ONDANSETRON [Concomitant]
     Active Substance: ONDANSETRON
     Dosage: UNK
     Route: 042
     Dates: start: 20120817
  278. ONDANSETRON [Concomitant]
     Active Substance: ONDANSETRON
     Dosage: UNK
  279. ONDANSETRON [Concomitant]
     Active Substance: ONDANSETRON
     Dosage: 6 MG (4-6 MG)
     Route: 048
     Dates: start: 20121012, end: 20221018
  280. ONDANSETRON [Concomitant]
     Active Substance: ONDANSETRON
     Dosage: 6 MILLIGRAM (4-6 MG)
     Route: 048
     Dates: start: 20121012, end: 20121018
  281. ONDANSETRON [Concomitant]
     Active Substance: ONDANSETRON
     Dosage: UNK
     Route: 048
     Dates: start: 20120914, end: 20120919
  282. ONDANSETRON [Concomitant]
     Active Substance: ONDANSETRON
     Dosage: UNK
     Dates: start: 20120817
  283. ONDANSETRON [Concomitant]
     Active Substance: ONDANSETRON
     Dosage: UNK
     Dates: start: 20120817, end: 20120821
  284. ONDANSETRON [Concomitant]
     Active Substance: ONDANSETRON
     Dosage: UNK
     Dates: start: 20120914, end: 20120919
  285. ONDANSETRON [Concomitant]
     Active Substance: ONDANSETRON
     Dosage: 6 MILLIGRAM 4-6 MG;
     Route: 048
     Dates: start: 20121012, end: 20121018
  286. ONDANSETRON [Concomitant]
     Active Substance: ONDANSETRON
     Dosage: UNK
     Route: 042
     Dates: start: 20120817
  287. ONDANSETRON [Concomitant]
     Active Substance: ONDANSETRON
     Dosage: 8 MILLIGRAM
     Dates: start: 20200212, end: 20200212
  288. RANITIDINE [Concomitant]
     Active Substance: RANITIDINE
     Indication: Product used for unknown indication
     Dosage: BOLUS
     Route: 040
     Dates: start: 20120817
  289. RANITIDINE [Concomitant]
     Active Substance: RANITIDINE
     Dosage: BOLUS
     Route: 042
     Dates: start: 20120817
  290. RANITIDINE [Concomitant]
     Active Substance: RANITIDINE
     Dosage: BOLUS
     Dates: start: 20120817
  291. RANITIDINE [Concomitant]
     Active Substance: RANITIDINE
     Dosage: BOLUS
     Route: 040
     Dates: start: 20120817
  292. RANITIDINE [Concomitant]
     Active Substance: RANITIDINE
     Dosage: BOLUS; ;
     Route: 040
     Dates: start: 20120817
  293. RANITIDINE [Concomitant]
     Active Substance: RANITIDINE
     Dosage: BOLUS; ;
     Dates: start: 20120817
  294. DEXAMETHASONE [Concomitant]
     Active Substance: DEXAMETHASONE
     Indication: Nausea
     Dosage: UNK
     Route: 065
     Dates: start: 20120816, end: 20120818
  295. DEXAMETHASONE [Concomitant]
     Active Substance: DEXAMETHASONE
     Dosage: UNK
     Dates: start: 20120816, end: 20120818
  296. DEXAMETHASONE [Concomitant]
     Active Substance: DEXAMETHASONE
     Dosage: 20 MILLIGRAM
     Dates: start: 20200212, end: 20200212
  297. DEXAMETHASONE [Concomitant]
     Active Substance: DEXAMETHASONE
     Dosage: 20 MILLIGRAM
     Dates: start: 20200325, end: 20200325
  298. DEXAMETHASONE [Concomitant]
     Active Substance: DEXAMETHASONE
     Dosage: UNK, 1X/DAY
     Dates: start: 20200504, end: 20200504
  299. DEXAMETHASONE [Concomitant]
     Active Substance: DEXAMETHASONE
     Dosage: 20 MILLIGRAM
     Dates: start: 20200304, end: 20200304
  300. DEXAMETHASONE [Concomitant]
     Active Substance: DEXAMETHASONE
     Dosage: 20 MILLIGRAM
     Dates: start: 20200323, end: 20200325
  301. METOCLOPRAMIDE [Concomitant]
     Active Substance: METOCLOPRAMIDE
     Indication: Product used for unknown indication
     Dosage: 80 MILLIGRAM (40-80 MG)/40-8- MG;
     Route: 065
     Dates: start: 20120914, end: 20120920
  302. METOCLOPRAMIDE [Concomitant]
     Active Substance: METOCLOPRAMIDE
     Dosage: 80 MILLIGRAM (40-80 MG)
     Dates: start: 20120914, end: 20120920
  303. METOCLOPRAMIDE [Concomitant]
     Active Substance: METOCLOPRAMIDE
     Dosage: 40-80 MG
     Route: 065
     Dates: start: 20120914, end: 20120920
  304. METOCLOPRAMIDE [Concomitant]
     Active Substance: METOCLOPRAMIDE
     Dosage: 40-80 MG; 80 MILLIGRAM (40-80 MG)
     Dates: start: 20120914, end: 20120920
  305. METOCLOPRAMIDE [Concomitant]
     Active Substance: METOCLOPRAMIDE
     Dosage: 40-80 MG
     Dates: start: 20120914, end: 20120920
  306. METOCLOPRAMIDE [Concomitant]
     Active Substance: METOCLOPRAMIDE
     Dosage: 40-80 MG;
     Dates: start: 20120914, end: 20120920
  307. METOCLOPRAMIDE [Concomitant]
     Active Substance: METOCLOPRAMIDE
     Dosage: 80 MG
     Dates: start: 20120914, end: 20120920
  308. METOCLOPRAMIDE [Concomitant]
     Active Substance: METOCLOPRAMIDE
     Dosage: 40-80 MG
     Dates: start: 20120914, end: 20120920
  309. METOCLOPRAMIDE [Concomitant]
     Active Substance: METOCLOPRAMIDE
     Dosage: 40-80 MG;
     Dates: start: 20120914, end: 20120920
  310. METOCLOPRAMIDE [Concomitant]
     Active Substance: METOCLOPRAMIDE
     Dosage: UNK
     Route: 030
     Dates: start: 20200511, end: 20200511
  311. CHLORPHENIRAMINE MALEATE [Concomitant]
     Active Substance: CHLORPHENIRAMINE MALEATE
     Indication: Product used for unknown indication
     Dosage: BOLUS; ;
     Route: 040
     Dates: start: 20120817
  312. CHLORPHENIRAMINE MALEATE [Concomitant]
     Active Substance: CHLORPHENIRAMINE MALEATE
     Dosage: BOLUS
     Route: 042
     Dates: start: 20120817
  313. CHLORPHENIRAMINE MALEATE [Concomitant]
     Active Substance: CHLORPHENIRAMINE MALEATE
     Dosage: BOLUS
     Dates: start: 20120817
  314. CHLORPHENIRAMINE MALEATE [Concomitant]
     Active Substance: CHLORPHENIRAMINE MALEATE
     Dosage: BOLUS
     Dates: start: 20120817
  315. CHLORPHENIRAMINE MALEATE [Concomitant]
     Active Substance: CHLORPHENIRAMINE MALEATE
     Dosage: BOLUS (ADDITIONAL INFO: ROUTE:INTRAVENOUS BOLUS)
     Dates: start: 20120817
  316. CHLORPHENIRAMINE MALEATE [Concomitant]
     Active Substance: CHLORPHENIRAMINE MALEATE
     Dosage: BOLUS; ;
     Dates: start: 20120817
  317. SIMVASTATIN [Concomitant]
     Active Substance: SIMVASTATIN
     Indication: Product used for unknown indication
     Dosage: UNK
  318. CHLORPHENAMINE [CHLORPHENAMINE MALEATE] [Concomitant]
     Indication: Product used for unknown indication
     Dosage: 10 MILLIGRAM
     Dates: start: 20200325, end: 20200325
  319. CHLORPHENAMINE [CHLORPHENAMINE MALEATE] [Concomitant]
     Dosage: 10 MILLIGRAM
     Dates: start: 20200304, end: 20200304
  320. MORPHINE HYDROCHLORIDE [Concomitant]
     Active Substance: MORPHINE HYDROCHLORIDE
     Indication: Pain in extremity
     Dosage: UNK
     Dates: start: 20200829
  321. ONDANSETRON HYDROCHLORIDE [Concomitant]
     Active Substance: ONDANSETRON HYDROCHLORIDE
     Indication: Product used for unknown indication
     Dosage: 8 MILLIGRAM
     Dates: start: 20200212, end: 20200212
  322. ONDANSETRON HYDROCHLORIDE [Concomitant]
     Active Substance: ONDANSETRON HYDROCHLORIDE
     Dosage: UNK
     Route: 048
     Dates: start: 20120817, end: 20120821
  323. ONDANSETRON HYDROCHLORIDE [Concomitant]
     Active Substance: ONDANSETRON HYDROCHLORIDE
     Dosage: UNK
     Route: 048
     Dates: start: 20120914, end: 20120918
  324. RANITIDINE [Concomitant]
     Active Substance: RANITIDINE
     Indication: Product used for unknown indication
     Dosage: 50 MILLIGRAM
     Dates: start: 20200325, end: 20200325
  325. RANITIDINE [Concomitant]
     Active Substance: RANITIDINE
     Dosage: 50 MILLIGRAM
     Dates: start: 20200304, end: 20200304
  326. PREDNISOLONE [Concomitant]
     Active Substance: PREDNISOLONE
     Indication: Hepatic failure
     Dosage: 1 DOSAGE FORM, QD
     Dates: start: 20200921, end: 20200925
  327. PREDNISOLONE [Concomitant]
     Active Substance: PREDNISOLONE
     Indication: Off label use
     Dosage: 1 DF, QD
     Dates: start: 20200926, end: 20201005
  328. PREDNISOLONE [Concomitant]
     Active Substance: PREDNISOLONE
     Dosage: 50 MILLIGRAM
     Dates: start: 20200325, end: 20200325
  329. PREDNISOLONE [Concomitant]
     Active Substance: PREDNISOLONE
     Dosage: 1 MILLIGRAM
     Dates: start: 20200921, end: 20201005
  330. CYCLIZINE HYDROCHLORIDE [Concomitant]
     Active Substance: CYCLIZINE HYDROCHLORIDE
     Indication: Nausea
     Dosage: UNK
  331. CYCLIZINE HYDROCHLORIDE [Concomitant]
     Active Substance: CYCLIZINE HYDROCHLORIDE
     Dosage: UNK, PRN
     Dates: start: 20200811
  332. CYCLIZINE HYDROCHLORIDE [Concomitant]
     Active Substance: CYCLIZINE HYDROCHLORIDE
     Dosage: UNK, AS NECESSARY
     Dates: start: 20190524
  333. LOPERAMIDE HYDROCHLORIDE [Concomitant]
     Active Substance: LOPERAMIDE HYDROCHLORIDE
     Indication: Diarrhoea
     Dosage: UNK
     Dates: start: 20200601
  334. FAMOTIDINE [Concomitant]
     Active Substance: FAMOTIDINE
     Indication: Hepatic failure
     Dosage: 40 MILLIGRAM, QD/ START DATE:12-FEB-2020
     Dates: start: 20200212
  335. DENOSUMAB [Concomitant]
     Active Substance: DENOSUMAB
     Indication: Bone pain
     Dosage: UNK
     Dates: start: 20200803
  336. WHOLE BLOOD [Concomitant]
     Active Substance: WHOLE BLOOD
     Indication: Haemoglobin decreased
     Dosage: UNK
     Dates: start: 20200428, end: 20200428
  337. RANITIDINE [Concomitant]
     Active Substance: RANITIDINE
     Indication: Product used for unknown indication
     Dosage: BOLUS
     Route: 042
  338. SIMVASTATIN [Concomitant]
     Active Substance: SIMVASTATIN
     Indication: Product used for unknown indication
  339. CHLORPHENIRAMINE MALEATE [Concomitant]
     Active Substance: CHLORPHENIRAMINE MALEATE
     Indication: Product used for unknown indication
     Dosage: BOLUS
     Route: 042
     Dates: start: 20120817
  340. METOCLOPRAMIDE HYDROCHLORIDE [Concomitant]
     Active Substance: METOCLOPRAMIDE HYDROCHLORIDE
     Indication: Product used for unknown indication
     Dosage: 80 MILLIGRAM (40-80 MG)
     Dates: start: 20120914, end: 20120920

REACTIONS (40)
  - Autoimmune haemolytic anaemia [Recovering/Resolving]
  - Autoimmune haemolytic anaemia [Recovering/Resolving]
  - Blood magnesium decreased [Recovering/Resolving]
  - Ear pain [Not Recovered/Not Resolved]
  - Ear pain [Not Recovered/Not Resolved]
  - Disease progression [Unknown]
  - Abdominal pain upper [Not Recovered/Not Resolved]
  - Haemoglobin decreased [Not Recovered/Not Resolved]
  - Haemoglobin decreased [Recovered/Resolved]
  - Haemoglobin decreased [Recovered/Resolved]
  - Platelet count decreased [Unknown]
  - Diarrhoea [Recovered/Resolved]
  - Diarrhoea [Recovered/Resolved]
  - Diarrhoea [Unknown]
  - Diarrhoea [Recovered/Resolved]
  - Nausea [Recovering/Resolving]
  - Nausea [Not Recovered/Not Resolved]
  - Vomiting [Recovering/Resolving]
  - Vomiting [Recovering/Resolving]
  - Vomiting [Recovering/Resolving]
  - White blood cell count decreased [Recovered/Resolved]
  - White blood cell count decreased [Recovered/Resolved]
  - Mucosal inflammation [Not Recovered/Not Resolved]
  - Mucosal inflammation [Not Recovered/Not Resolved]
  - Anaemia [Recovered/Resolved]
  - Decreased appetite [Not Recovered/Not Resolved]
  - Decreased appetite [Not Recovered/Not Resolved]
  - Hepatic failure [Not Recovered/Not Resolved]
  - Weight decreased [Recovered/Resolved]
  - Fatigue [Not Recovered/Not Resolved]
  - Neuropathy peripheral [Unknown]
  - Pain in extremity [Unknown]
  - Bone pain [Not Recovered/Not Resolved]
  - Off label use [Unknown]
  - Off label use [Unknown]
  - Off label use [Unknown]
  - Intentional product use issue [Unknown]
  - Decreased appetite [Not Recovered/Not Resolved]
  - Off label use [Unknown]
  - Intentional product use issue [Unknown]

NARRATIVE: CASE EVENT DATE: 20120817
